FAERS Safety Report 14921354 (Version 1)
Quarter: 2018Q2

REPORT INFORMATION
  Report Type: Spontaneous
  Country: US (occurrence: US)
  Receive Date: 20180522
  Receipt Date: 20180522
  Transmission Date: 20180711
  Serious: No
  Sender: FDA-Public Use
  Company Number: US-BEH-2018090801

PATIENT
  Age: 49 Year
  Sex: Female
  Weight: 68.27 kg

DRUGS (18)
  1. PROMETHAZINE [Concomitant]
     Active Substance: PROMETHAZINE\PROMETHAZINE HYDROCHLORIDE
  2. ZOFRAN [Concomitant]
     Active Substance: ONDANSETRON HYDROCHLORIDE
  3. MS CONTIN [Concomitant]
     Active Substance: MORPHINE SULFATE
  4. PRIVIGEN [Suspect]
     Active Substance: HUMAN IMMUNOGLOBULIN G
     Indication: IMMUNODEFICIENCY COMMON VARIABLE
     Dosage: 25 G, QMT
     Route: 042
     Dates: start: 20170713, end: 20180406
  5. ACETAMINOPHEN. [Concomitant]
     Active Substance: ACETAMINOPHEN
  6. SODIUM CHLORIDE. [Concomitant]
     Active Substance: SODIUM CHLORIDE
  7. PROZAC [Concomitant]
     Active Substance: FLUOXETINE HYDROCHLORIDE
  8. PERCOCET                           /00446701/ [Concomitant]
     Active Substance: ACETAMINOPHEN\OXYCODONE HYDROCHLORIDE\OXYCODONE TEREPHTHALATE
  9. DECADRON [Suspect]
     Active Substance: DEXAMETHASONE
  10. PRIVIGEN [Suspect]
     Active Substance: HUMAN IMMUNOGLOBULIN G
     Dosage: 25 G, TOT
     Route: 042
     Dates: start: 20180406, end: 20180406
  11. PRIVIGEN [Suspect]
     Active Substance: HUMAN IMMUNOGLOBULIN G
     Dosage: UNK
     Route: 042
  12. FAMOTIDINE. [Concomitant]
     Active Substance: FAMOTIDINE
  13. NORMAL SALINE [Concomitant]
     Active Substance: SODIUM CHLORIDE
  14. KLONOPIN [Concomitant]
     Active Substance: CLONAZEPAM
  15. PRIVIGEN [Suspect]
     Active Substance: HUMAN IMMUNOGLOBULIN G
     Dosage: UNK
     Route: 042
  16. LIDOCAINE. [Concomitant]
     Active Substance: LIDOCAINE
  17. EPINEPHRINE. [Concomitant]
     Active Substance: EPINEPHRINE
  18. DIPHENHYDRAMINE. [Concomitant]
     Active Substance: DIPHENHYDRAMINE

REACTIONS (4)
  - Pain [Unknown]
  - Nausea [Unknown]
  - Vomiting [Unknown]
  - Headache [Unknown]

NARRATIVE: CASE EVENT DATE: 20180406
